FAERS Safety Report 18612445 (Version 1)
Quarter: 2020Q4

REPORT INFORMATION
  Report Type: Spontaneous
  Country: JP (occurrence: JP)
  Receive Date: 20201214
  Receipt Date: 20201214
  Transmission Date: 20210114
  Serious: Yes (Death, Other)
  Sender: FDA-Public Use
  Company Number: JP-ELI_LILLY_AND_COMPANY-JP202012003755

PATIENT
  Sex: Male
  Weight: 87 kg

DRUGS (1)
  1. TADALAFIL. [Suspect]
     Active Substance: TADALAFIL
     Indication: PRODUCT USED FOR UNKNOWN INDICATION
     Dosage: UNK, UNKNOWN
     Route: 065

REACTIONS (6)
  - Coronary artery stenosis [Unknown]
  - Loss of consciousness [Unknown]
  - Arteriosclerosis coronary artery [Unknown]
  - Renal hypertension [Unknown]
  - Arrhythmia [Fatal]
  - Cardiomegaly [Unknown]
